FAERS Safety Report 13692609 (Version 4)
Quarter: 2017Q4

REPORT INFORMATION
  Report Type: Spontaneous
  Country: US (occurrence: US)
  Receive Date: 20170627
  Receipt Date: 20171201
  Transmission Date: 20180320
  Serious: No
  Sender: FDA-Public Use
  Company Number: US-PFIZER INC-2017276094

PATIENT
  Age: 66 Year
  Sex: Female

DRUGS (4)
  1. IBRANCE [Suspect]
     Active Substance: PALBOCICLIB
     Dosage: 125 MG, DAILY
     Route: 048
     Dates: start: 201703
  2. IBRANCE [Suspect]
     Active Substance: PALBOCICLIB
     Indication: BREAST CANCER FEMALE
     Dosage: 125 MG, 1X/DAY
     Route: 048
     Dates: start: 20170425
  3. IBRANCE [Suspect]
     Active Substance: PALBOCICLIB
     Dosage: UNK UNK, WEEKLY(ONCE A WEEK)
  4. IBRANCE [Suspect]
     Active Substance: PALBOCICLIB
     Dosage: UNK, 2X/WEEK (TWICE WEEKLY THERAPY)

REACTIONS (9)
  - Hypotension [Unknown]
  - Ageusia [Unknown]
  - Depression [Unknown]
  - Pain in extremity [Unknown]
  - Dizziness [Unknown]
  - Weight decreased [Unknown]
  - Mood altered [Unknown]
  - Diarrhoea [Unknown]
  - Decreased appetite [Unknown]

NARRATIVE: CASE EVENT DATE: 2017
